FAERS Safety Report 5954770-1 (Version None)
Quarter: 2008Q4

REPORT INFORMATION
  Report Type: 
  Country: None (occurrence: None)
  Receive Date: 20081112
  Receipt Date: 20081029
  Transmission Date: 20090506
  Serious: Yes (Other)
  Sender: FDA-Public Use
  Company Number: 036407

PATIENT
  Sex: 0

DRUGS (2)
  1. ANTABUSE [Suspect]
     Indication: DRUG DEPENDENCE
  2. COCAINE(COCAINE) [Suspect]

REACTIONS (2)
  - DRUG INTERACTION [None]
  - PARANOIA [None]
